FAERS Safety Report 7517946-8 (Version None)
Quarter: 2011Q2

REPORT INFORMATION
  Report Type: 
  Country: None (occurrence: None)
  Receive Date: 20110527
  Receipt Date: 20110527
  Transmission Date: 20111010
  Serious: Yes (Hospitalization)
  Sender: FDA-Public Use
  Company Number: None

PATIENT
  Age: 46 Year
  Sex: Male

DRUGS (1)
  1. METOPROLOL TARTRATE [Suspect]
     Indication: ANGINA PECTORIS
     Dosage: 25 MG BID PO
     Route: 048
     Dates: start: 20110520, end: 20110524

REACTIONS (1)
  - HYPOTENSION [None]
